FAERS Safety Report 25837345 (Version 1)
Quarter: 2025Q3

REPORT INFORMATION
  Report Type: Spontaneous
  Country: US (occurrence: None)
  Receive Date: 20250923
  Receipt Date: 20250923
  Transmission Date: 20251020
  Serious: Yes (Other)
  Sender: FDA-CTU
  Company Number: None

PATIENT
  Age: 73 Year
  Sex: Female

DRUGS (1)
  1. FORTEO [Suspect]
     Active Substance: TERIPARATIDE
     Indication: Senile osteoporosis
     Dosage: FREQUENCY : DAILY;?
     Route: 058
     Dates: start: 20250819, end: 20250923

REACTIONS (7)
  - Insomnia [None]
  - Fatigue [None]
  - Eye swelling [None]
  - Confusional state [None]
  - Depression [None]
  - Paranoia [None]
  - Pain in extremity [None]

NARRATIVE: CASE EVENT DATE: 20250923
